FAERS Safety Report 19582757 (Version 2)
Quarter: 2021Q3

REPORT INFORMATION
  Report Type: Report from Study
  Country: IT (occurrence: IT)
  Receive Date: 20210720
  Receipt Date: 20210721
  Transmission Date: 20211014
  Serious: Yes (Hospitalization)
  Sender: FDA-Public Use
  Company Number: IT-PFIZER INC-2021842904

PATIENT
  Age: 49 Year
  Sex: Male

DRUGS (1)
  1. TAVOR (LORAZEPAM) [Suspect]
     Active Substance: LORAZEPAM
     Dosage: 40 DF TOTAL
     Route: 048
     Dates: start: 20210505, end: 20210505

REACTIONS (5)
  - Suicide attempt [Recovered/Resolved]
  - Alcohol abuse [Recovered/Resolved]
  - Drug abuse [Recovered/Resolved]
  - Wheezing [Recovered/Resolved]
  - Sopor [Recovered/Resolved]

NARRATIVE: CASE EVENT DATE: 20210505
